FAERS Safety Report 15545380 (Version 3)
Quarter: 2018Q4

REPORT INFORMATION
  Report Type: Spontaneous
  Country: US (occurrence: US)
  Receive Date: 20181024
  Receipt Date: 20181109
  Transmission Date: 20190205
  Serious: Yes (Death, Other)
  Sender: FDA-Public Use
  Company Number: US-KYOWAKIRIN-2018BKK007947

PATIENT

DRUGS (1)
  1. POTELIGEO [Suspect]
     Active Substance: MOGAMULIZUMAB-KPKC
     Indication: MYCOSIS FUNGOIDES REFRACTORY
     Dosage: UNKNOWN
     Route: 065
     Dates: start: 20181004, end: 20181004

REACTIONS (3)
  - Septic shock [Fatal]
  - Lung infiltration [Unknown]
  - Skin disorder [Unknown]

NARRATIVE: CASE EVENT DATE: 201810
